FAERS Safety Report 11869794 (Version 6)
Quarter: 2016Q3

REPORT INFORMATION
  Report Type: Spontaneous
  Country: GB (occurrence: GB)
  Receive Date: 20151228
  Receipt Date: 20160709
  Transmission Date: 20161109
  Serious: Yes (Other)
  Sender: FDA-Public Use
  Company Number: GB-AMGEN-GBRSP2015110607

PATIENT
  Age: 82 Year
  Sex: Female

DRUGS (7)
  1. VINORELBINE [Suspect]
     Active Substance: VINORELBINE\VINORELBINE TARTRATE
     Indication: PRODUCT USED FOR UNKNOWN INDICATION
     Dosage: UNK
     Route: 048
  2. NEULASTA [Suspect]
     Active Substance: PEGFILGRASTIM
     Indication: PRODUCT USED FOR UNKNOWN INDICATION
     Dosage: UNK
     Route: 065
  3. VINORELBINE [Suspect]
     Active Substance: VINORELBINE\VINORELBINE TARTRATE
     Dosage: UNK
     Route: 048
     Dates: start: 20151202
  4. PERJETA [Suspect]
     Active Substance: PERTUZUMAB
     Indication: PRODUCT USED FOR UNKNOWN INDICATION
     Dosage: 420 MG IN 264 ML
     Route: 042
  5. PERJETA [Suspect]
     Active Substance: PERTUZUMAB
     Dosage: UNK
     Route: 042
     Dates: start: 20151202
  6. HERCEPTIN [Suspect]
     Active Substance: TRASTUZUMAB
     Dosage: UNK
     Route: 042
     Dates: start: 20151202
  7. HERCEPTIN [Suspect]
     Active Substance: TRASTUZUMAB
     Indication: PRODUCT USED FOR UNKNOWN INDICATION
     Dosage: 360 MG IN 267 ML
     Route: 042

REACTIONS (20)
  - Axillary pain [Unknown]
  - Dry mouth [Unknown]
  - Muscle spasms [Unknown]
  - Tongue ulceration [Unknown]
  - Drug ineffective [Unknown]
  - Rash macular [Recovering/Resolving]
  - Onychoclasis [Unknown]
  - Oral pain [Unknown]
  - Alopecia [Unknown]
  - Dry skin [Recovering/Resolving]
  - Mouth ulceration [Unknown]
  - Pain in extremity [Unknown]
  - Pain of skin [Not Recovered/Not Resolved]
  - Mass [Unknown]
  - Cellulitis [Unknown]
  - Toxicity to various agents [Unknown]
  - Nail injury [Unknown]
  - Tumour pain [Unknown]
  - Soft tissue swelling [Unknown]
  - Fatigue [Unknown]
